FAERS Safety Report 17429647 (Version 1)
Quarter: 2020Q1

REPORT INFORMATION
  Report Type: Spontaneous
  Country: JP (occurrence: JP)
  Receive Date: 20200218
  Receipt Date: 20200218
  Transmission Date: 20200409
  Serious: Yes (Hospitalization, Other)
  Sender: FDA-Public Use
  Company Number: JP-FERRINGPH-2020FE00883

PATIENT
  Age: 33 Year
  Sex: Female

DRUGS (4)
  1. CABERGOLINE. [Suspect]
     Active Substance: CABERGOLINE
     Indication: PROPHYLAXIS
     Route: 065
  2. HCG [Suspect]
     Active Substance: GONADOTROPHIN, CHORIONIC
     Indication: ASSISTED REPRODUCTIVE TECHNOLOGY
     Dosage: 10000 IU
     Route: 065
  3. MENOPUR [Suspect]
     Active Substance: FOLLITROPIN\LUTEINIZING HORMONE
     Indication: ASSISTED REPRODUCTIVE TECHNOLOGY
     Dosage: 1425 IU
     Route: 065
  4. FSH [Suspect]
     Active Substance: FOLLITROPIN
     Indication: ASSISTED REPRODUCTIVE TECHNOLOGY
     Dosage: 450 IU
     Route: 065

REACTIONS (10)
  - Abdominal distension [Unknown]
  - Renal disorder [Recovering/Resolving]
  - Ureteric compression [Unknown]
  - Ascites [Unknown]
  - Blood creatinine increased [Recovering/Resolving]
  - Abdominal pain [Unknown]
  - Hydronephrosis [Unknown]
  - Oliguria [Recovering/Resolving]
  - Ovarian enlargement [Unknown]
  - Abdominal pain lower [Unknown]
